FAERS Safety Report 13132994 (Version 1)
Quarter: 2017Q1

REPORT INFORMATION
  Report Type: Spontaneous
  Country: FR (occurrence: FR)
  Receive Date: 20170120
  Receipt Date: 20170120
  Transmission Date: 20170428
  Serious: Yes (Death)
  Sender: FDA-Public Use
  Company Number: FR-ACCORD-046368

PATIENT
  Age: 67 Year
  Sex: Female

DRUGS (2)
  1. HERCEPTIN [Suspect]
     Active Substance: TRASTUZUMAB
     Indication: BREAST CANCER
     Dosage: IN ONE SINGLE INTAKE
     Route: 042
     Dates: start: 20161019
  2. DOCETAXEL ACCORD [Suspect]
     Active Substance: DOCETAXEL
     Indication: BREAST CANCER
     Route: 042
     Dates: start: 20161019

REACTIONS (5)
  - Necrotising fasciitis [Fatal]
  - Septic shock [Fatal]
  - Proctitis [Fatal]
  - Agranulocytosis [Fatal]
  - Clostridial infection [Fatal]

NARRATIVE: CASE EVENT DATE: 20161029
